FAERS Safety Report 13071782 (Version 3)
Quarter: 2017Q1

REPORT INFORMATION
  Report Type: Report from Study
  Country: KR (occurrence: KR)
  Receive Date: 20161229
  Receipt Date: 20170220
  Transmission Date: 20170428
  Serious: Yes (Hospitalization)
  Sender: FDA-Public Use
  Company Number: KR-BAYER-2016-242913

PATIENT
  Age: 82 Year
  Sex: Female

DRUGS (1)
  1. BETAFERON [Suspect]
     Active Substance: INTERFERON BETA-1B
     Indication: MULTIPLE SCLEROSIS
     Dosage: UNK UNK, QOD
     Route: 058
     Dates: start: 20090220

REACTIONS (3)
  - Decubitus ulcer [None]
  - Diarrhoea [Not Recovered/Not Resolved]
  - Urethral pain [None]

NARRATIVE: CASE EVENT DATE: 201611
